FAERS Safety Report 24832102 (Version 2)
Quarter: 2025Q3

REPORT INFORMATION
  Report Type: Report from Study
  Country: ZA (occurrence: ZA)
  Receive Date: 20250110
  Receipt Date: 20250802
  Transmission Date: 20251021
  Serious: Yes (Death, Other)
  Sender: ALEXION PHARMACEUTICALS
  Company Number: ZA-AstraZeneca-CH-00781729A

PATIENT
  Age: 78 Year
  Sex: Male

DRUGS (9)
  1. DAPAGLIFLOZIN [Suspect]
     Active Substance: DAPAGLIFLOZIN
     Indication: Diabetes mellitus
  2. POTASSIUM CHLORIDE [Concomitant]
     Active Substance: POTASSIUM CHLORIDE
     Indication: Hypokalaemia
  3. FUROSEMIDE [Concomitant]
     Active Substance: FUROSEMIDE
     Indication: Hypertension
  4. QUETIAPINE [Concomitant]
     Active Substance: QUETIAPINE
  5. ASPIRIN [Concomitant]
     Active Substance: ASPIRIN
  6. Spiractin [Concomitant]
     Indication: Hypertension
  7. Lipogen [Concomitant]
     Indication: Blood cholesterol
  8. BISOPROLOL FUMARATE [Concomitant]
     Active Substance: BISOPROLOL FUMARATE
     Indication: Hypertension
  9. Tramazac [Concomitant]
     Indication: Pain

REACTIONS (1)
  - Death [Fatal]
